FAERS Safety Report 13697718 (Version 1)
Quarter: 2017Q2

REPORT INFORMATION
  Report Type: Spontaneous
  Country: US (occurrence: US)
  Receive Date: 20170627
  Receipt Date: 20170627
  Transmission Date: 20170830
  Serious: No
  Sender: FDA-Public Use
  Company Number: None

PATIENT
  Age: 57 Year
  Sex: Female

DRUGS (1)
  1. BEXAROTENE CAP 75MG [Suspect]
     Active Substance: BEXAROTENE

REACTIONS (1)
  - Nausea [None]

NARRATIVE: CASE EVENT DATE: 20170620
